FAERS Safety Report 9503519 (Version 1)
Quarter: 2013Q3

REPORT INFORMATION
  Report Type: Spontaneous
  Country: CO (occurrence: CO)
  Receive Date: 20130906
  Receipt Date: 20130906
  Transmission Date: 20140515
  Serious: Yes (Other)
  Sender: FDA-Public Use
  Company Number: CO-AMGEN-COLSP2013062333

PATIENT
  Age: 80 Year
  Sex: Female

DRUGS (9)
  1. ENBREL [Suspect]
     Indication: RHEUMATOID ARTHRITIS
     Dosage: 50 MG, WEEKLY
     Route: 058
  2. SALBUTAMOL [Concomitant]
     Indication: BRONCHIECTASIS
     Dosage: UNK, ONCE DAILY
     Route: 048
     Dates: start: 1998
  3. IPRATROPIUM BROMIDE [Concomitant]
     Indication: BRONCHIECTASIS
     Dosage: UNK, TWICE DAILY
     Route: 048
     Dates: start: 1998
  4. BECLOMETHASONE                     /00212602/ [Concomitant]
     Indication: BRONCHIECTASIS
     Dosage: UNK, TWICE DAILY
     Route: 048
     Dates: start: 1998
  5. CALCITRIOL [Concomitant]
     Indication: RHEUMATOID ARTHRITIS
     Dosage: 25 MG, ONCE DAILY
     Route: 048
     Dates: start: 2009
  6. ACETAMINOPHEN [Concomitant]
     Indication: RHEUMATOID ARTHRITIS
     Dosage: 500 MG, ONCE DAILY
     Route: 048
     Dates: start: 2009
  7. FOLIC ACID [Concomitant]
     Indication: RHEUMATOID ARTHRITIS
     Dosage: 1 MG, ONCE DAILY
     Route: 048
     Dates: start: 2009
  8. PREDNISOLON                        /00016201/ [Concomitant]
     Indication: RHEUMATOID ARTHRITIS
     Dosage: 5 MG, ONCE DAILY
     Route: 048
     Dates: start: 2009
  9. METHOTREXATE [Concomitant]
     Indication: RHEUMATOID ARTHRITIS
     Dosage: 2.5 MG, ONCE DAILY
     Route: 048
     Dates: start: 2009

REACTIONS (2)
  - Hyperkeratosis [Recovered/Resolved]
  - Drug ineffective [Recovering/Resolving]
